FAERS Safety Report 6190532-0 (Version None)
Quarter: 2009Q2

REPORT INFORMATION
  Report Type: 
  Country: None (occurrence: None)
  Receive Date: 20090514
  Receipt Date: 20090504
  Transmission Date: 20091009
  Serious: Yes (Hospitalization, Other)
  Sender: FDA-Public Use
  Company Number: PHHY2009IN16796

PATIENT
  Age: 38 Year
  Sex: Male

DRUGS (2)
  1. ACLASTA [Suspect]
     Indication: OSTEOPOROSIS
     Dosage: 5 MG, UNK
  2. CROCIN [Concomitant]
     Dosage: 500 MG, TID

REACTIONS (7)
  - CHEST PAIN [None]
  - CHILLS [None]
  - DIZZINESS [None]
  - NAUSEA [None]
  - OCULAR HYPERAEMIA [None]
  - PYREXIA [None]
  - VOMITING [None]
